FAERS Safety Report 8200376-3 (Version None)
Quarter: 2012Q1

REPORT INFORMATION
  Report Type: 
  Country: None (occurrence: None)
  Receive Date: 20120309
  Receipt Date: 20120309
  Transmission Date: 20120608
  Serious: Yes (Hospitalization)
  Sender: FDA-Public Use
  Company Number: None

PATIENT
  Age: 78 Year
  Sex: Male
  Weight: 69.5 kg

DRUGS (2)
  1. FILGRASTIM [Suspect]
     Indication: NEUTROPENIA
     Dosage: 300 MCG EVERY DAY SQ
     Route: 058
     Dates: start: 20111024, end: 20120202
  2. BLEOMYCIN SULFATE [Suspect]
     Indication: HODGKIN'S DISEASE
     Dosage: 18 UNITS OTHER IV
     Route: 042
     Dates: start: 20111024, end: 20120119

REACTIONS (4)
  - PNEUMOMEDIASTINUM [None]
  - TOXICITY TO VARIOUS AGENTS [None]
  - PNEUMONIA [None]
  - PULMONARY FIBROSIS [None]
